FAERS Safety Report 21922399 (Version 1)
Quarter: 2023Q1

REPORT INFORMATION
  Report Type: Spontaneous
  Country: US (occurrence: US)
  Receive Date: 20230128
  Receipt Date: 20230128
  Transmission Date: 20230418
  Serious: No
  Sender: FDA-Public Use
  Company Number: US-AMGEN-USASP2022228370

PATIENT
  Sex: Female

DRUGS (11)
  1. OTEZLA [Suspect]
     Active Substance: APREMILAST
     Indication: Psoriasis
     Dosage: 30 MILLIGRAM, BID
     Route: 048
  2. OTEZLA [Suspect]
     Active Substance: APREMILAST
     Dosage: 30 MILLIGRAM, BID
     Route: 048
  3. DESONIDE [Concomitant]
     Active Substance: DESONIDE
  4. ECOTRIN [Concomitant]
     Active Substance: ASPIRIN
     Dosage: 325 MILLIGRAM
  5. FOLIC ACID [Concomitant]
     Active Substance: FOLIC ACID
  6. FUROSEMIDE [Concomitant]
     Active Substance: FUROSEMIDE
  7. HALOBETASOL PROPIONATE [Concomitant]
     Active Substance: HALOBETASOL PROPIONATE
  8. IBUPROFEN [Concomitant]
     Active Substance: IBUPROFEN
  9. LOVASTATIN [Concomitant]
     Active Substance: LOVASTATIN
     Dosage: 40 MILLIGRAM
  10. METHOTREXATE [Concomitant]
     Active Substance: METHOTREXATE
  11. POTASSIUM [Concomitant]
     Active Substance: POTASSIUM
     Dosage: 99 MILLIGRAM

REACTIONS (1)
  - Therapeutic product effect decreased [Unknown]
